FAERS Safety Report 12249032 (Version 1)
Quarter: 2016Q2

REPORT INFORMATION
  Report Type: Spontaneous
  Country: NO (occurrence: NO)
  Receive Date: 20160408
  Receipt Date: 20160408
  Transmission Date: 20160815
  Serious: Yes (Disabling)
  Sender: FDA-Public Use
  Company Number: NO-TEVA-650227ACC

PATIENT
  Age: 57 Year
  Sex: Male

DRUGS (2)
  1. MABTHERA [Suspect]
     Active Substance: RITUXIMAB
     Indication: LYMPHOPLASMACYTOID LYMPHOMA/IMMUNOCYTOMA STAGE IV
     Dosage: OTHER (2 IN 1 MONTH, A TOTAL OF 6 THERAPY COURSES)
     Route: 042
     Dates: start: 201107, end: 201111
  2. BENDAMUSTINE HYDROCHLORIDE. [Suspect]
     Active Substance: BENDAMUSTINE HYDROCHLORIDE
     Indication: LYMPHOPLASMACYTOID LYMPHOMA/IMMUNOCYTOMA STAGE IV
     Dosage: (A TOTAL OF 6 THERAPY COURSES)
     Route: 042
     Dates: start: 201107, end: 201111

REACTIONS (2)
  - Spirometry abnormal [Not Recovered/Not Resolved]
  - Emphysema [Not Recovered/Not Resolved]

NARRATIVE: CASE EVENT DATE: 201409
